FAERS Safety Report 5139529-X (Version None)
Quarter: 2006Q4

REPORT INFORMATION
  Report Type: 
  Country: None (occurrence: None)
  Receive Date: 20061024
  Receipt Date: 20061011
  Transmission Date: 20070319
  Serious: Yes (Life-Threatening)
  Sender: FDA-Public Use
  Company Number: 2006125140

PATIENT
  Age: 87 Year
  Sex: Female

DRUGS (1)
  1. CELECOXIB (CELECOXIB) [Suspect]
     Dosage: 200 MG (100 MG, 2 IN 1 D), ORAL
     Route: 048
     Dates: start: 20040501

REACTIONS (2)
  - CARDIAC FAILURE [None]
  - PARANOIA [None]
